FAERS Safety Report 4356074-X (Version None)
Quarter: 2004Q2

REPORT INFORMATION
  Report Type: 
  Country: None (occurrence: None)
  Receive Date: 20040507
  Receipt Date: 20040507
  Transmission Date: 20050107
  Serious: Yes (Hospitalization)
  Sender: FDA-Public Use
  Company Number: None

PATIENT
  Age: 36 Year
  Sex: Male
  Weight: 101.8 kg

DRUGS (28)
  1. ARIPIPRAZOLE [Suspect]
  2. HALOPERIDOL DECANOATE [Concomitant]
  3. DANTROLENE [Concomitant]
  4. CLONIDINE HCL [Concomitant]
  5. LORAZEPAM [Concomitant]
  6. ACETAMINOPHEN [Concomitant]
  7. DIPHENHYDRAMINE HCL [Concomitant]
  8. BENZTROPINE MESYLATE [Concomitant]
  9. CLONAZEPAM [Concomitant]
  10. ACETAMINOPHEN [Concomitant]
  11. HALOPERIDOL [Concomitant]
  12. HYDROCORTISONE [Concomitant]
  13. HYDROXYZINE [Concomitant]
  14. TEMAZEPAM [Concomitant]
  15. RISPERIDONE [Concomitant]
  16. NICOTINE POLACRILEX [Concomitant]
  17. TRIHEXYPHENIDYL HCL [Concomitant]
  18. CARBAMAZEPINE [Concomitant]
  19. LORAZEPAM [Concomitant]
  20. MAGNESIUM HYDROXIDE TAB [Concomitant]
  21. HALOPERIDOL [Concomitant]
  22. ANTACID CONCENTRATE [Concomitant]
  23. ACETAMINOPHEN [Concomitant]
  24. RANITIDINE [Concomitant]
  25. MAGNESIUM SULFATE [Concomitant]
  26. M.V.I. [Concomitant]
  27. THIAMINE [Concomitant]
  28. FOLIC ACID [Concomitant]

REACTIONS (9)
  - AGITATION [None]
  - BLOOD CREATINE PHOSPHOKINASE INCREASED [None]
  - CONFUSIONAL STATE [None]
  - DYSPHAGIA [None]
  - LABILE BLOOD PRESSURE [None]
  - LEUKOCYTOSIS [None]
  - MUSCLE RIGIDITY [None]
  - PYREXIA [None]
  - TACHYCARDIA [None]
